FAERS Safety Report 5412061-1 (Version None)
Quarter: 2007Q3

REPORT INFORMATION
  Report Type: 
  Country: None (occurrence: None)
  Receive Date: 20070809
  Receipt Date: 20070730
  Transmission Date: 20080115
  Serious: Yes (Other)
  Sender: FDA-Public Use
  Company Number: 17126

PATIENT
  Age: 16 Year
  Sex: Female

DRUGS (8)
  1. VINCRISTINE [Suspect]
     Indication: EWING'S SARCOMA
     Dosage: 1.5 MG/M2
  2. VINCRISTINE [Suspect]
     Indication: EWING'S SARCOMA
  3. DOXORUBICIN HYDROCHLORIDE [Suspect]
     Indication: EWING'S SARCOMA
     Dosage: 75 MG/M2
  4. DOXORUBICIN HYDROCHLORIDE [Suspect]
     Indication: EWING'S SARCOMA
  5. CYCLOPHOSPHAMIDE [Suspect]
     Indication: EWING'S SARCOMA
     Dosage: 1200 MG/M2
  6. CYCLOPHOSPHAMIDE [Suspect]
     Indication: EWING'S SARCOMA
  7. DACTINOMYCIN [Suspect]
     Indication: EWING'S SARCOMA
     Dosage: 1.2  MG/M2
  8. DACTINOMYCIN [Suspect]
     Indication: EWING'S SARCOMA

REACTIONS (1)
  - MUCOEPIDERMOID CARCINOMA [None]
